FAERS Safety Report 15450741 (Version 1)
Quarter: 2018Q4

REPORT INFORMATION
  Report Type: Spontaneous
  Country: US (occurrence: US)
  Receive Date: 20181001
  Receipt Date: 20181001
  Transmission Date: 20190204
  Serious: No
  Sender: FDA-Public Use
  Company Number: US-SA-2018SA270964

PATIENT

DRUGS (3)
  1. OZEMPIC [Suspect]
     Active Substance: SEMAGLUTIDE
  2. LANTUS [Suspect]
     Active Substance: INSULIN GLARGINE
     Dosage: 40 IU, BEDTIME
  3. AMARYL [Suspect]
     Active Substance: GLIMEPIRIDE

REACTIONS (3)
  - Flatulence [Unknown]
  - Blood glucose increased [Unknown]
  - Constipation [Unknown]
